FAERS Safety Report 16438134 (Version 1)
Quarter: 2019Q2

REPORT INFORMATION
  Report Type: Report from Study
  Country: KR (occurrence: KR)
  Receive Date: 20190617
  Receipt Date: 20190617
  Transmission Date: 20190711
  Serious: Yes (Hospitalization)
  Sender: FDA-Public Use
  Company Number: KR-IPSEN BIOPHARMACEUTICALS, INC.-2019-07574

PATIENT
  Age: 50 Year
  Sex: Male

DRUGS (20)
  1. FLUOROURACIL SODIUM [Suspect]
     Active Substance: FLUOROURACIL SODIUM
     Route: 042
     Dates: start: 20190420, end: 20190422
  2. DEXAMETHASONE. [Concomitant]
     Active Substance: DEXAMETHASONE
     Indication: PROPHYLAXIS
     Route: 042
     Dates: start: 20190223
  3. ONIVYDE [Suspect]
     Active Substance: IRINOTECAN HYDROCHLORIDE
     Route: 042
     Dates: start: 20190420, end: 20190420
  4. LEUCOVORIN. [Suspect]
     Active Substance: LEUCOVORIN
     Route: 042
     Dates: start: 20190420, end: 20190420
  5. FLUOROURACIL SODIUM [Suspect]
     Active Substance: FLUOROURACIL SODIUM
     Indication: PANCREATIC CARCINOMA METASTATIC
     Route: 042
     Dates: start: 20190402, end: 20190404
  6. MAGNESIUM HYDROXIDE. [Concomitant]
     Active Substance: MAGNESIUM HYDROXIDE
     Indication: CONSTIPATION
     Route: 048
  7. LACTULOSE. [Concomitant]
     Active Substance: LACTULOSE
     Indication: CONSTIPATION
     Route: 048
     Dates: start: 20190129
  8. ATROPINE SULFATE. [Concomitant]
     Active Substance: ATROPINE SULFATE
     Indication: PROPHYLAXIS
     Route: 058
     Dates: start: 20190223
  9. ONIVYDE [Suspect]
     Active Substance: IRINOTECAN HYDROCHLORIDE
     Route: 042
     Dates: start: 20190509, end: 20190509
  10. LEUCOVORIN. [Suspect]
     Active Substance: LEUCOVORIN
     Route: 042
     Dates: start: 20190509, end: 20190509
  11. PRUCALOPRIDE [Concomitant]
     Active Substance: PRUCALOPRIDE
     Indication: CONSTIPATION
     Route: 048
     Dates: start: 20190329
  12. GRANISETRON HYDROCHLORIDE. [Concomitant]
     Active Substance: GRANISETRON HYDROCHLORIDE
     Indication: NAUSEA
     Dates: start: 20190314
  13. FENTANYL CITRATE. [Concomitant]
     Active Substance: FENTANYL CITRATE
     Indication: BACK PAIN
     Route: 048
     Dates: start: 20190401
  14. FENTANYL CITRATE. [Concomitant]
     Active Substance: FENTANYL CITRATE
     Indication: ABDOMINAL PAIN
  15. ULTRACET [Concomitant]
     Active Substance: ACETAMINOPHEN\TRAMADOL HYDROCHLORIDE
     Indication: BACK PAIN
     Route: 048
     Dates: start: 20181129
  16. PALONOSETRON. [Concomitant]
     Active Substance: PALONOSETRON HYDROCHLORIDE
     Indication: PROPHYLAXIS
     Route: 042
     Dates: start: 20190223
  17. FLUOROURACIL SODIUM [Suspect]
     Active Substance: FLUOROURACIL SODIUM
     Route: 042
     Dates: start: 20190509, end: 20190511
  18. ULTRACET [Concomitant]
     Active Substance: ACETAMINOPHEN\TRAMADOL HYDROCHLORIDE
     Indication: ABDOMINAL PAIN
  19. ONIVYDE [Suspect]
     Active Substance: IRINOTECAN HYDROCHLORIDE
     Indication: PANCREATIC CARCINOMA METASTATIC
     Dosage: QD
     Route: 042
     Dates: start: 20190402, end: 20190402
  20. LEUCOVORIN. [Suspect]
     Active Substance: LEUCOVORIN
     Indication: PANCREATIC CARCINOMA METASTATIC
     Route: 042
     Dates: start: 20190402, end: 20190402

REACTIONS (4)
  - Dizziness [Recovered/Resolved]
  - Nausea [Recovered/Resolved]
  - Supraventricular tachycardia [Unknown]
  - Decreased appetite [Recovered/Resolved]

NARRATIVE: CASE EVENT DATE: 20190402
